FAERS Safety Report 9437936 (Version 1)
Quarter: 2013Q3

REPORT INFORMATION
  Report Type: Spontaneous
  Country: US (occurrence: US)
  Receive Date: 20130802
  Receipt Date: 20130802
  Transmission Date: 20140515
  Serious: No
  Sender: FDA-Public Use
  Company Number: US-BRISTOL-MYERS SQUIBB COMPANY-18771980

PATIENT
  Age: 84 Year
  Sex: Female

DRUGS (11)
  1. COUMADIN [Suspect]
     Dates: start: 2012
  2. DILANTIN [Suspect]
     Indication: CONVULSION
     Dosage: CAPS?DILANTIN CHEWABLE TABS ALSO TAKEN 50MG/DAY FROM 2012.
     Route: 048
     Dates: start: 2012
  3. KEPPRA [Suspect]
     Indication: CONVULSION
     Dates: start: 2012
  4. SEROQUEL [Suspect]
     Dates: start: 2012
  5. TOPROL XL [Suspect]
     Indication: CARDIAC DISORDER
  6. TOPROL XL [Suspect]
     Indication: BLOOD PRESSURE ABNORMAL
  7. SPIRONOLACTONE [Suspect]
  8. VITAMIN D [Suspect]
  9. VITAMIN B12 [Suspect]
  10. VITAMIN E [Suspect]
  11. TEMAZEPAM [Concomitant]
     Indication: SOMNOLENCE

REACTIONS (4)
  - Pain [Recovering/Resolving]
  - Gait disturbance [Unknown]
  - Joint effusion [Unknown]
  - Musculoskeletal pain [Recovering/Resolving]
